FAERS Safety Report 6653593-8 (Version None)
Quarter: 2010Q1

REPORT INFORMATION
  Report Type: 
  Country: None (occurrence: None)
  Receive Date: 20100326
  Receipt Date: 20100317
  Transmission Date: 20100710
  Serious: Yes (Hospitalization, Other)
  Sender: FDA-Public Use
  Company Number: US-SANOFI-AVENTIS-2010SA016762

PATIENT
  Sex: Female

DRUGS (2)
  1. LANTUS [Suspect]
     Route: 058
  2. OPTICLICK [Suspect]

REACTIONS (5)
  - FALL [None]
  - HYPOAESTHESIA [None]
  - HYPOGLYCAEMIA [None]
  - NEUROPATHY PERIPHERAL [None]
  - PAIN [None]
